FAERS Safety Report 9319618 (Version 1)
Quarter: 2013Q2

REPORT INFORMATION
  Report Type: Spontaneous
  Country: US (occurrence: US)
  Receive Date: 20130530
  Receipt Date: 20130530
  Transmission Date: 20140414
  Serious: No
  Sender: FDA-Public Use
  Company Number: US-GLAXOSMITHKLINE-A1013567A

PATIENT
  Sex: Female

DRUGS (6)
  1. FLOLAN [Suspect]
     Indication: PRODUCT USED FOR UNKNOWN INDICATION
     Dosage: 28.5NGKM CONTINUOUS
     Route: 042
     Dates: start: 20090522
  2. REVATIO [Concomitant]
  3. COUMADIN [Concomitant]
  4. TRACLEER [Concomitant]
  5. LASIX [Concomitant]
  6. ANTIBIOTIC [Concomitant]

REACTIONS (1)
  - Vascular injury [Unknown]
